FAERS Safety Report 14583462 (Version 2)
Quarter: 2018Q1

REPORT INFORMATION
  Report Type: Report from Study
  Country: AR (occurrence: AR)
  Receive Date: 20180228
  Receipt Date: 20180328
  Transmission Date: 20180509
  Serious: Yes (Life-Threatening, Other)
  Sender: FDA-Public Use
  Company Number: AR-BRISTOL-MYERS SQUIBB COMPANY-BMS-2016-080029

PATIENT
  Age: 41 Year
  Sex: Male

DRUGS (1)
  1. BELATACEPT [Suspect]
     Active Substance: BELATACEPT
     Indication: RENAL TRANSPLANT
     Dosage: UNK, QMO
     Route: 042
     Dates: start: 20150717, end: 20160930

REACTIONS (7)
  - Vomiting [Recovered/Resolved]
  - Weight decreased [Unknown]
  - Oropharyngeal pain [Recovered/Resolved]
  - Oral pain [Unknown]
  - Glossodynia [Recovered/Resolved]
  - Poisoning [Recovered/Resolved]
  - Renal transplant failure [Recovered/Resolved]

NARRATIVE: CASE EVENT DATE: 20160401
